FAERS Safety Report 5000039-1 (Version None)
Quarter: 2006Q2

REPORT INFORMATION
  Report Type: 
  Country: None (occurrence: None)
  Receive Date: 20060509
  Receipt Date: 20060502
  Transmission Date: 20061013
  Serious: Yes (Hospitalization)
  Sender: FDA-Public Use
  Company Number: 200610414BFR

PATIENT
  Sex: Male

DRUGS (5)
  1. ADALAT [Suspect]
     Indication: THREATENED LABOUR
     Dosage: 20 MG, TID, TRANSPLACENTAL
     Route: 064
     Dates: end: 20060206
  2. CLAMOXYL (AMOXICILLIN SODIUM) [Suspect]
     Indication: STREPTOCOCCAL INFECTION
     Dosage: 3 G, TOTAL DAILY, TRANSPLACENTAL
     Route: 064
     Dates: start: 20060203
  3. LOVENOX [Suspect]
     Indication: THROMBOSIS PROPHYLAXIS
     Dosage: TRANSPLACENTAL
     Route: 064
  4. TRACTOCILE (ATOSIBAN) [Suspect]
     Indication: THREATENED LABOUR
     Dosage: TRANSPLACENTAL
     Route: 064
     Dates: start: 20060206, end: 20060208
  5. CELESTENE [Concomitant]

REACTIONS (4)
  - CHORIOAMNIONITIS [None]
  - DRUG EXPOSURE DURING PREGNANCY [None]
  - NEONATAL HYPOXIA [None]
  - PULMONARY ARTERIAL PRESSURE INCREASED [None]
